FAERS Safety Report 8015036-1 (Version None)
Quarter: 2011Q4

REPORT INFORMATION
  Report Type: 
  Country: None (occurrence: None)
  Receive Date: 20111230
  Receipt Date: 20111222
  Transmission Date: 20120403
  Serious: No
  Sender: FDA-Public Use
  Company Number: US-BIOGENIDEC-2011BI030047

PATIENT
  Sex: Female

DRUGS (5)
  1. OMEGAS [Concomitant]
  2. TYSABRI [Suspect]
     Indication: MULTIPLE SCLEROSIS
     Route: 042
     Dates: start: 20110408, end: 20111026
  3. VITAMIN D [Concomitant]
  4. VITAMIN A [Concomitant]
  5. BENADRYL [Concomitant]
     Indication: PREMEDICATION

REACTIONS (23)
  - CENTRAL NERVOUS SYSTEM LESION [None]
  - RASH [None]
  - HEADACHE [None]
  - MUSCLE SPASMS [None]
  - HEMIPARESIS [None]
  - HEAD INJURY [None]
  - COGNITIVE DISORDER [None]
  - MEMORY IMPAIRMENT [None]
  - BODY TEMPERATURE INCREASED [None]
  - LOSS OF CONTROL OF LEGS [None]
  - WEIGHT DECREASED [None]
  - VERTIGO [None]
  - FATIGUE [None]
  - PYREXIA [None]
  - DIARRHOEA [None]
  - BAND SENSATION [None]
  - FALL [None]
  - VISUAL IMPAIRMENT [None]
  - BLOOD POTASSIUM DECREASED [None]
  - MULTIPLE SCLEROSIS [None]
  - URTICARIA [None]
  - MUSCLE SPASTICITY [None]
  - PRURITUS [None]
